FAERS Safety Report 9559358 (Version 2)
Quarter: 2014Q2

REPORT INFORMATION
  Report Type: Spontaneous
  Country: US (occurrence: None)
  Receive Date: 20130925
  Receipt Date: 20140527
  Transmission Date: 20141212
  Serious: Yes (Other)
  Sender: FDA-Public Use
  Company Number: 2013-US-000987

PATIENT
  Age: 32 Year
  Sex: Female

DRUGS (2)
  1. XYREM [Suspect]
     Indication: CATAPLEXY
     Dates: start: 20120604, end: 2012
  2. XYREM [Suspect]
     Indication: NARCOLEPSY
     Dates: start: 20120604, end: 2012

REACTIONS (6)
  - Hip surgery [None]
  - Vomiting [None]
  - Nausea [None]
  - Intentional product misuse [None]
  - Inappropriate schedule of drug administration [None]
  - Incorrect dose administered [None]
